FAERS Safety Report 4283401-4 (Version None)
Quarter: 2004Q1

REPORT INFORMATION
  Report Type: 
  Country: None (occurrence: None)
  Receive Date: 20040129
  Receipt Date: 20040113
  Transmission Date: 20041129
  Serious: Yes (Life-Threatening, Hospitalization)
  Sender: FDA-Public Use
  Company Number: 2003SE05724

PATIENT

DRUGS (2)
  1. SEROQUEL [Suspect]
     Indication: DEPRESSION
     Dosage: 250 MG DAILY TPL
     Route: 064
     Dates: start: 20020101, end: 20030301
  2. SEROQUEL [Suspect]
     Indication: DEPRESSION
     Dosage: 25 MG DAILY TPL
     Route: 064
     Dates: start: 20030301, end: 20030830

REACTIONS (5)
  - BLOOD GLUCOSE ABNORMAL [None]
  - CAESAREAN SECTION [None]
  - DRUG EXPOSURE DURING PREGNANCY [None]
  - MOVEMENT DISORDER [None]
  - NEONATAL DISORDER [None]
